FAERS Safety Report 4634405-0 (Version None)
Quarter: 2005Q2

REPORT INFORMATION
  Report Type: 
  Country: None (occurrence: None)
  Receive Date: 20050411
  Receipt Date: 20020108
  Transmission Date: 20051028
  Serious: No
  Sender: FDA-Public Use
  Company Number: 3255

PATIENT
  Age: 4 Year

DRUGS (2)
  1. VINCRISTINE [Suspect]
     Indication: B-CELL LYMPHOMA
  2. ITRACONAZOLE [Concomitant]

REACTIONS (13)
  - ABDOMINAL PAIN [None]
  - ALANINE AMINOTRANSFERASE INCREASED [None]
  - ASPARTATE AMINOTRANSFERASE INCREASED [None]
  - CONSTIPATION [None]
  - CONVULSION [None]
  - DRUG INTERACTION [None]
  - DRUG LEVEL ABOVE THERAPEUTIC [None]
  - DRUG TOXICITY [None]
  - ENCEPHALOPATHY [None]
  - HEPATIC ENZYME ABNORMAL [None]
  - HYPERTENSION [None]
  - IRRITABILITY [None]
  - NEUROTOXICITY [None]
